FAERS Safety Report 9619339 (Version 2)
Quarter: 2013Q4

REPORT INFORMATION
  Report Type: Spontaneous
  Country: US (occurrence: US)
  Receive Date: 20131014
  Receipt Date: 20131014
  Transmission Date: 20140711
  Serious: Yes (Hospitalization)
  Sender: FDA-Public Use
  Company Number: US-CUBIST-2009S1000463

PATIENT
  Age: 24 Year
  Sex: Female
  Weight: 70 kg

DRUGS (9)
  1. CUBICIN [Suspect]
     Route: 042
     Dates: start: 20081111, end: 20081218
  2. CUBICIN [Suspect]
     Indication: ENDOCARDITIS
     Route: 042
     Dates: start: 20081111, end: 20081218
  3. OXYCODONE [Concomitant]
     Route: 042
  4. DEMEROL [Concomitant]
     Route: 042
  5. RITALIN [Concomitant]
     Route: 042
  6. ZOSYN [Concomitant]
     Indication: STAPHYLOCOCCAL BACTERAEMIA
  7. LEVOQUIN [Concomitant]
     Indication: STAPHYLOCOCCAL BACTERAEMIA
  8. VANCOMYCIN [Concomitant]
  9. NAFCILLIN [Concomitant]
     Indication: PRODUCT USED FOR UNKNOWN INDICATION

REACTIONS (3)
  - Exposure during pregnancy [Recovered/Resolved]
  - Breech presentation [Recovered/Resolved]
  - Opiates positive [Unknown]
